FAERS Safety Report 12899730 (Version 3)
Quarter: 2017Q2

REPORT INFORMATION
  Report Type: Spontaneous
  Country: US (occurrence: US)
  Receive Date: 20161101
  Receipt Date: 20170516
  Transmission Date: 20170830
  Serious: No
  Sender: FDA-Public Use
  Company Number: US-PFIZER INC-2016503237

PATIENT
  Age: 29 Year
  Sex: Female

DRUGS (5)
  1. DITROPAN [Suspect]
     Active Substance: OXYBUTYNIN CHLORIDE
     Dosage: UNK
  2. BACTRIM [Suspect]
     Active Substance: SULFAMETHOXAZOLE\TRIMETHOPRIM
     Dosage: UNK
  3. PAXIL [Suspect]
     Active Substance: PAROXETINE HYDROCHLORIDE
     Dosage: UNK
  4. CIPRO [Suspect]
     Active Substance: CIPROFLOXACIN HYDROCHLORIDE
     Dosage: UNK
     Route: 048
  5. CELEBREX [Suspect]
     Active Substance: CELECOXIB
     Dosage: 100 MG, 2X/DAY,(BID)
     Route: 048

REACTIONS (1)
  - Drug hypersensitivity [Unknown]
